FAERS Safety Report 5762753-X (Version None)
Quarter: 2008Q2

REPORT INFORMATION
  Report Type: 
  Country: None (occurrence: None)
  Receive Date: 20080527
  Receipt Date: 20070530
  Transmission Date: 20081010
  Serious: Yes (Hospitalization)
  Sender: FDA-Public Use
  Company Number: MK-6034165

PATIENT
  Age: 53 Year
  Sex: Female

DRUGS (2)
  1. ATENOLOL [Suspect]
     Indication: DRUG USE FOR UNKNOWN INDICATION
     Dosage: 500 MG;TWICE A DAY;ORAL
     Route: 048
     Dates: start: 20070205, end: 20070410
  2. RANEXA [Suspect]
     Indication: ANGINA PECTORIS

REACTIONS (2)
  - BRADYCARDIA [None]
  - HYPOTENSION [None]
